FAERS Safety Report 24726646 (Version 5)
Quarter: 2025Q4

REPORT INFORMATION
  Report Type: Report from Study
  Country: US (occurrence: US)
  Receive Date: 20241212
  Receipt Date: 20251030
  Transmission Date: 20260118
  Serious: Yes (Hospitalization)
  Sender: ABBVIE
  Company Number: US-ABBVIE-6042478

PATIENT
  Age: 60 Year
  Sex: Female

DRUGS (5)
  1. SKYRIZI [Suspect]
     Active Substance: RISANKIZUMAB-RZAA
     Indication: Crohn^s disease
     Dosage: DISCONTINUED IN 2024
     Route: 058
     Dates: start: 20240620
  2. SKYRIZI [Suspect]
     Active Substance: RISANKIZUMAB-RZAA
     Dosage: DISCONTINUED IN 2024
     Route: 058
     Dates: start: 20240715
  3. SKYRIZI [Suspect]
     Active Substance: RISANKIZUMAB-RZAA
     Route: 058
     Dates: start: 202501
  4. SKYRIZI [Suspect]
     Active Substance: RISANKIZUMAB-RZAA
     Dosage: LAST ADMINISTRATION DATE JUN 2024
     Route: 058
     Dates: start: 20240605
  5. SKYRIZI [Suspect]
     Active Substance: RISANKIZUMAB-RZAA
     Route: 058
     Dates: start: 20240612

REACTIONS (5)
  - Cerebrovascular accident [Recovering/Resolving]
  - Crohn^s disease [Unknown]
  - Malaise [Unknown]
  - Anxiety [Unknown]
  - Speech disorder [Unknown]

NARRATIVE: CASE EVENT DATE: 20241125
